FAERS Safety Report 18277073 (Version 1)
Quarter: 2020Q3

REPORT INFORMATION
  Report Type: Spontaneous
  Country: US (occurrence: US)
  Receive Date: 20200916
  Receipt Date: 20200916
  Transmission Date: 20201103
  Serious: No
  Sender: FDA-Public Use
  Company Number: None

PATIENT
  Sex: Female

DRUGS (4)
  1. ENBREL [Suspect]
     Active Substance: ETANERCEPT
     Indication: RHEUMATOID ARTHRITIS
     Route: 058
     Dates: start: 201611
  2. MONTE UKAST SODIUM 10MG [Concomitant]
  3. POST NATAL VITAMINS DAILY [Concomitant]
  4. ALBUTEROL HFA 90MCG [Concomitant]

REACTIONS (1)
  - Drug ineffective [None]
